FAERS Safety Report 5530878-X (Version None)
Quarter: 2007Q4

REPORT INFORMATION
  Report Type: 
  Country: None (occurrence: None)
  Receive Date: 20071130
  Receipt Date: 20070129
  Transmission Date: 20080405
  Serious: No
  Sender: FDA-Public Use
  Company Number: AU-PFIZER INC-2007004766

PATIENT
  Sex: Male

DRUGS (19)
  1. FLUCONAZOLE [Suspect]
     Indication: PROPHYLAXIS
     Dosage: DAILY DOSE:400MG
     Route: 048
  2. CYTARABINE [Suspect]
     Indication: MYELOID LEUKAEMIA
     Dosage: DAILY DOSE:200MG
     Route: 042
  3. DAUNORUBICIN HCL [Suspect]
     Indication: MYELOID LEUKAEMIA
     Dosage: DAILY DOSE:100MG
     Route: 042
     Dates: start: 20030402, end: 20030404
  4. ACETAMINOPHEN [Suspect]
     Indication: PAIN
     Dosage: DAILY DOSE:3GRAM
     Route: 048
     Dates: start: 20030411, end: 20030411
  5. CEFEPIME HYDROCHLORIDE [Suspect]
     Dosage: DAILY DOSE:1GRAM
     Route: 042
     Dates: start: 20030412, end: 20030417
  6. ALLOPURINOL [Suspect]
     Dosage: DAILY DOSE:300MG
     Route: 048
     Dates: start: 20030326, end: 20030418
  7. ALBUTEROL [Concomitant]
  8. IPRATROPIUM BROMIDE [Concomitant]
  9. THIAMINE [Concomitant]
  10. VITAMIN CAP [Concomitant]
  11. LOPERAMIDE HYDROCHLORIDE [Concomitant]
  12. DEXAMETHASONE [Concomitant]
  13. ONDANSETRON HYDROCHLORIDE [Concomitant]
  14. SODIUM BICARBONATE [Concomitant]
  15. POTASSIUM CHLORIDE [Concomitant]
  16. FRUSEMIDE [Concomitant]
  17. MYLANTA [Concomitant]
  18. NICOTINE RESIN [Concomitant]
  19. METRONIDAZOLE [Concomitant]

REACTIONS (1)
  - NO ADVERSE REACTION [None]
